FAERS Safety Report 7290124-6 (Version None)
Quarter: 2011Q1

REPORT INFORMATION
  Report Type: 
  Country: None (occurrence: None)
  Receive Date: 20110214
  Receipt Date: 20110207
  Transmission Date: 20110831
  Serious: Yes (Hospitalization, Other)
  Sender: FDA-Public Use
  Company Number: FR-BRISTOL-MYERS SQUIBB COMPANY-15536154

PATIENT
  Age: 87 Year
  Sex: Female

DRUGS (4)
  1. COUMADIN [Suspect]
     Indication: ATRIAL FIBRILLATION
     Route: 048
     Dates: start: 20080501, end: 20100823
  2. TANAKAN [Concomitant]
     Indication: ATRIAL FIBRILLATION
     Dates: start: 20080501
  3. VASTAREL [Concomitant]
     Indication: ATRIAL FIBRILLATION
     Dates: start: 20080501
  4. CORDARONE [Concomitant]
     Indication: ATRIAL FIBRILLATION
     Dates: start: 20080501

REACTIONS (7)
  - MELAENA [None]
  - INTERVERTEBRAL DISC COMPRESSION [None]
  - RECTAL HAEMORRHAGE [None]
  - ANAEMIA [None]
  - FRACTURE [None]
  - TRANSIENT ISCHAEMIC ATTACK [None]
  - INTERNATIONAL NORMALISED RATIO INCREASED [None]
